FAERS Safety Report 17483751 (Version 1)
Quarter: 2020Q1

REPORT INFORMATION
  Report Type: Spontaneous
  Country: SE (occurrence: SE)
  Receive Date: 20200302
  Receipt Date: 20200302
  Transmission Date: 20200409
  Serious: Yes (Other)
  Sender: FDA-Public Use
  Company Number: SE-009507513-2002SWE009534

PATIENT
  Age: 60 Year
  Sex: Female
  Weight: 58 kg

DRUGS (2)
  1. AERIUS (DESLORATADINE) [Suspect]
     Active Substance: DESLORATADINE
     Dosage: 5 MILLIGRAM, ONCE, FILM- COATED TABLET
     Dates: start: 20200205, end: 20200205
  2. AERIUS (DESLORATADINE) [Suspect]
     Active Substance: DESLORATADINE
     Dosage: 5 MILLIGRAM, ONCE, FILM- COATED TABLET, 1 TOTAL
     Dates: start: 20200203, end: 20200203

REACTIONS (1)
  - Angioedema [Recovering/Resolving]

NARRATIVE: CASE EVENT DATE: 20200204
